FAERS Safety Report 4317657-6 (Version None)
Quarter: 2004Q1

REPORT INFORMATION
  Report Type: 
  Country: None (occurrence: None)
  Receive Date: 20040315
  Receipt Date: 20040309
  Transmission Date: 20041129
  Serious: Yes (Hospitalization)
  Sender: FDA-Public Use
  Company Number: FR-GLAXOSMITHKLINE-B0326578A

PATIENT
  Age: 40 Year
  Sex: Male

DRUGS (1)
  1. ZEFFIX [Suspect]
     Dosage: 100MG PER DAY
     Route: 048
     Dates: start: 20000101

REACTIONS (2)
  - NEUTROPENIA [None]
  - THROMBOCYTOPENIA [None]
